FAERS Safety Report 11754512 (Version 1)
Quarter: 2015Q4

REPORT INFORMATION
  Report Type: Spontaneous
  Country: US (occurrence: None)
  Receive Date: 20151119
  Receipt Date: 20151119
  Transmission Date: 20160304
  Serious: No
  Sender: FDA-Public Use
  Company Number: MERZ NORTH AMERICA, INC.-15MRZ-00643

PATIENT
  Sex: Female

DRUGS (1)
  1. XEOMIN [Suspect]
     Active Substance: INCOBOTULINUMTOXINA
     Indication: SKIN WRINKLING
     Dosage: 10 UNITS EACH CROW^S FEET?16 UNITS GLABELLA?10 UNITS FOREHEAD
     Dates: start: 20151023

REACTIONS (1)
  - Eye irritation [None]
